FAERS Safety Report 25965940 (Version 1)
Quarter: 2025Q4

REPORT INFORMATION
  Report Type: Spontaneous
  Country: US (occurrence: US)
  Receive Date: 20251027
  Receipt Date: 20251027
  Transmission Date: 20260118
  Serious: No
  Sender: ABBVIE
  Company Number: US-ABBVIE-6519716

PATIENT
  Age: 44 Year
  Sex: Female

DRUGS (1)
  1. HUMIRA [Suspect]
     Active Substance: ADALIMUMAB
     Indication: Hidradenitis
     Dosage: FORM STRENGTH: 40MG/0.4ML
     Route: 058

REACTIONS (6)
  - Needle issue [Unknown]
  - Pain [Unknown]
  - Device issue [Unknown]
  - Device leakage [Not Recovered/Not Resolved]
  - Stress [Unknown]
  - Hidradenitis [Unknown]
